FAERS Safety Report 13229621 (Version 1)
Quarter: 2017Q1

REPORT INFORMATION
  Report Type: Spontaneous
  Country: US (occurrence: US)
  Receive Date: 20170214
  Receipt Date: 20170214
  Transmission Date: 20170428
  Serious: Yes (Hospitalization, Other)
  Sender: FDA-Public Use
  Company Number: US-ELI_LILLY_AND_COMPANY-US201702002156

PATIENT
  Age: 41 Year
  Sex: Female
  Weight: 117.91 kg

DRUGS (14)
  1. HUMIRA [Suspect]
     Active Substance: ADALIMUMAB
     Indication: HLA-B*27 POSITIVE
  2. HYZAAR [Suspect]
     Active Substance: HYDROCHLOROTHIAZIDE\LOSARTAN POTASSIUM
     Indication: PRODUCT USED FOR UNKNOWN INDICATION
     Dosage: UNK, UNKNOWN
     Route: 065
     Dates: end: 201608
  3. SYNTHROID [Concomitant]
     Active Substance: LEVOTHYROXINE SODIUM
     Indication: HYPOTHYROIDISM
     Dosage: UNK, UNKNOWN
     Route: 065
  4. HUMIRA [Suspect]
     Active Substance: ADALIMUMAB
     Indication: IRITIS
  5. CYMBALTA [Suspect]
     Active Substance: DULOXETINE HYDROCHLORIDE
     Indication: BACK PAIN
  6. LOSARTAN. [Concomitant]
     Active Substance: LOSARTAN
     Indication: PRODUCT USED FOR UNKNOWN INDICATION
     Dosage: UNK
     Dates: start: 201608
  7. CYMBALTA [Suspect]
     Active Substance: DULOXETINE HYDROCHLORIDE
     Indication: ANXIETY
     Dosage: 90 MG, QD
     Route: 065
     Dates: end: 201608
  8. HUMIRA [Suspect]
     Active Substance: ADALIMUMAB
     Indication: ANKYLOSING SPONDYLITIS
     Dosage: 40 MG, ONE EVERY TWO WEEKS
     Route: 058
  9. SPIRONOLACTONE. [Suspect]
     Active Substance: SPIRONOLACTONE
     Indication: PRODUCT USED FOR UNKNOWN INDICATION
     Dosage: UNK, UNKNOWN
     Route: 065
     Dates: end: 201608
  10. TRAMADOL. [Concomitant]
     Active Substance: TRAMADOL
     Indication: PAIN
     Dosage: UNK, UNKNOWN
     Route: 065
  11. WELLBUTRIN [Concomitant]
     Active Substance: BUPROPION HYDROCHLORIDE
     Indication: PRODUCT USED FOR UNKNOWN INDICATION
     Dosage: UNK, UNKNOWN
     Route: 065
     Dates: end: 201601
  12. TYLENOL [Concomitant]
     Active Substance: ACETAMINOPHEN
     Indication: PAIN
     Dosage: UNK, UNKNOWN
     Route: 065
  13. CYMBALTA [Suspect]
     Active Substance: DULOXETINE HYDROCHLORIDE
     Indication: DEPRESSION
     Dosage: 60 MG, QD
     Route: 065
     Dates: start: 201608
  14. ALPRAZOLAM. [Concomitant]
     Active Substance: ALPRAZOLAM
     Indication: PRODUCT USED FOR UNKNOWN INDICATION
     Dosage: UNK, UNKNOWN
     Route: 065

REACTIONS (2)
  - Atrial fibrillation [Recovered/Resolved]
  - Blood potassium decreased [Recovered/Resolved]

NARRATIVE: CASE EVENT DATE: 20160802
